FAERS Safety Report 7868044-5 (Version None)
Quarter: 2011Q4

REPORT INFORMATION
  Report Type: 
  Country: None (occurrence: None)
  Receive Date: 20111028
  Receipt Date: 20111017
  Transmission Date: 20120403
  Serious: Yes (Hospitalization)
  Sender: FDA-Public Use
  Company Number: JP-ASTRAZENECA-2011SE64307

PATIENT
  Sex: Male
  Weight: 78 kg

DRUGS (3)
  1. TANDRILAX [Concomitant]
     Indication: RHEUMATOID ARTHRITIS
     Route: 048
  2. CANDESARTAN CILEXETIL [Suspect]
     Indication: HYPERTENSION
     Route: 048
  3. CANDESARTAN CILEXETIL [Suspect]
     Route: 048

REACTIONS (4)
  - FEELING ABNORMAL [None]
  - DRUG INEFFECTIVE [None]
  - BLOOD PRESSURE INCREASED [None]
  - TABLET PHYSICAL ISSUE [None]
